FAERS Safety Report 5796004-7 (Version None)
Quarter: 2008Q3

REPORT INFORMATION
  Report Type: 
  Country: None (occurrence: None)
  Receive Date: 20080701
  Receipt Date: 20080620
  Transmission Date: 20090109
  Serious: No
  Sender: FDA-Public Use
  Company Number: US-ROCHE-566634

PATIENT
  Sex: Female

DRUGS (1)
  1. ISOTRETINOIN (NON-ROCHE/NON-COMPARATOR) [Suspect]
     Indication: DRUG USE FOR UNKNOWN INDICATION
     Route: 065
     Dates: end: 20080401

REACTIONS (2)
  - NO ADVERSE EVENT [None]
  - PREGNANCY [None]
